FAERS Safety Report 8599029-1 (Version None)
Quarter: 2012Q3

REPORT INFORMATION
  Report Type: 
  Country: None (occurrence: None)
  Receive Date: 20120816
  Receipt Date: 19910525
  Transmission Date: 20120928
  Serious: Yes (Other)
  Sender: FDA-Public Use
  Company Number: US-ROCHE-1100937

PATIENT
  Age: 52 Year
  Sex: Male

DRUGS (1)
  1. ACTIVASE [Suspect]
     Indication: ACUTE MYOCARDIAL INFARCTION

REACTIONS (4)
  - DYSPNOEA [None]
  - SINUS BRADYCARDIA [None]
  - VENTRICULAR EXTRASYSTOLES [None]
  - NAUSEA [None]
